FAERS Safety Report 17591337 (Version 1)
Quarter: 2020Q1

REPORT INFORMATION
  Report Type: Spontaneous
  Country: FR (occurrence: FR)
  Receive Date: 20200327
  Receipt Date: 20200327
  Transmission Date: 20200409
  Serious: Yes (Death)
  Sender: FDA-Public Use
  Company Number: FR-PFIZER INC-2020128847

PATIENT
  Age: 70 Year
  Sex: Female
  Weight: 60 kg

DRUGS (18)
  1. PACLITAXEL. [Suspect]
     Active Substance: PACLITAXEL
     Indication: OROPHARYNGEAL SQUAMOUS CELL CARCINOMA
     Dosage: (CYCLE 1 DAY1 03FEB2020, CYCLE 1 DAY 8 10FEB2020)
     Route: 042
     Dates: start: 20200203, end: 20200210
  2. CARBAMAZEPINE SANDOZ [Concomitant]
     Active Substance: CARBAMAZEPINE
     Dosage: 400 MG, 1X/DAY
     Route: 048
  3. MORPHINE [Concomitant]
     Active Substance: MORPHINE
     Indication: PAIN
     Dosage: 60 MG, 1X/DAY, (PROLONGED RELEASE)
     Route: 048
  4. ERBITUX [Concomitant]
     Active Substance: CETUXIMAB
     Dosage: 6 THERAPIES CARBOPLATIN ERBITUX
     Route: 042
     Dates: end: 20200123
  5. CARBOPLATIN. [Concomitant]
     Active Substance: CARBOPLATIN
     Dosage: 6 THERAPIES CARBOPLATIN ERBITUX
     Route: 042
     Dates: end: 20200123
  6. PYRIDOXINE [Concomitant]
     Active Substance: PYRIDOXINE
     Dosage: UNK
     Route: 048
  7. ALPRAZOLAM. [Concomitant]
     Active Substance: ALPRAZOLAM
     Dosage: 0.5 MG, 1X/DAY
     Route: 048
  8. FUROSEMIDE. [Concomitant]
     Active Substance: FUROSEMIDE
     Dosage: 20 MG, 1X/DAY
     Route: 048
  9. LEVOTHYROX [Concomitant]
     Active Substance: LEVOTHYROXINE
     Dosage: 100 UG, 1X/DAY
     Route: 048
  10. PARACETAMOL [Concomitant]
     Active Substance: ACETAMINOPHEN
     Dosage: UNK
     Route: 048
  11. THIAMINE HCL [Concomitant]
     Active Substance: THIAMINE HYDROCHLORIDE
     Dosage: UNK
     Route: 048
  12. SPIRONOLACTONE. [Concomitant]
     Active Substance: SPIRONOLACTONE
     Dosage: 75 MG, 1X/DAY
     Route: 048
  13. MORPHINE [Concomitant]
     Active Substance: MORPHINE
     Dosage: 10 MG, (IMMEDIATE RELEASE, EVERY 6 HOURS IN CASE OF PAINS)
     Route: 048
  14. ACAMPROSATE CALCIUM. [Concomitant]
     Active Substance: ACAMPROSATE CALCIUM
     Dosage: 6 DF, 1X/DAY
     Route: 048
  15. CLOMIPRAMINE [Concomitant]
     Active Substance: CLOMIPRAMINE
     Dosage: 75 MG, 1X/DAY
     Route: 048
  16. ESOMEPRAZOLE. [Concomitant]
     Active Substance: ESOMEPRAZOLE MAGNESIUM
     Dosage: 20 MG, 1X/DAY
     Route: 048
  17. DIFFU K [Concomitant]
     Active Substance: POTASSIUM CHLORIDE
     Dosage: 3 DF, 1X/DAY
  18. LACTULOSE. [Concomitant]
     Active Substance: LACTULOSE
     Dosage: 20 G, 1X/DAY
     Route: 048

REACTIONS (3)
  - Interstitial lung disease [Fatal]
  - Off label use [Unknown]
  - Product use in unapproved indication [Unknown]

NARRATIVE: CASE EVENT DATE: 20200203
